FAERS Safety Report 14677829 (Version 2)
Quarter: 2018Q2

REPORT INFORMATION
  Report Type: Report from Study
  Country: None (occurrence: CA)
  Receive Date: 20180326
  Receipt Date: 20180607
  Transmission Date: 20180711
  Serious: Yes (Other)
  Sender: FDA-Public Use
  Company Number: CA-ABBVIE-18K-028-2294879-00

PATIENT
  Sex: Female
  Weight: 84.1 kg

DRUGS (1)
  1. HUMIRA [Suspect]
     Active Substance: ADALIMUMAB
     Indication: EXPOSURE VIA BODY FLUID
     Route: 050
     Dates: start: 20170824

REACTIONS (3)
  - Paternal drugs affecting foetus [Unknown]
  - Abortion spontaneous [Unknown]
  - Exposure during pregnancy [Unknown]
